FAERS Safety Report 11121426 (Version 1)
Quarter: 2015Q2

REPORT INFORMATION
  Report Type: Spontaneous
  Country: US (occurrence: US)
  Receive Date: 20150519
  Receipt Date: 20150519
  Transmission Date: 20150821
  Serious: Yes (Hospitalization)
  Sender: FDA-Public Use
  Company Number: US-ASTELLAS-2015US010944

PATIENT
  Age: 80 Year
  Sex: Male

DRUGS (2)
  1. XTANDI [Suspect]
     Active Substance: ENZALUTAMIDE
     Indication: PROSTATE CANCER
     Route: 048
     Dates: start: 20141110
  2. XTANDI [Suspect]
     Active Substance: ENZALUTAMIDE
     Indication: BONE CANCER

REACTIONS (5)
  - Dyspnoea [Unknown]
  - Dysgeusia [Unknown]
  - Dyskinesia [Unknown]
  - Weight decreased [Unknown]
  - Feeding disorder [Unknown]

NARRATIVE: CASE EVENT DATE: 20150511
